FAERS Safety Report 22150351 (Version 2)
Quarter: 2023Q2

REPORT INFORMATION
  Report Type: Spontaneous
  Country: FR (occurrence: FR)
  Receive Date: 20230329
  Receipt Date: 20230405
  Transmission Date: 20230721
  Serious: Yes (Other)
  Sender: FDA-Public Use
  Company Number: FR-TERSERA THERAPEUTICS LLC-2023TRS001351

PATIENT

DRUGS (2)
  1. PRIALT [Suspect]
     Active Substance: ZICONOTIDE ACETATE
     Indication: Pain
     Dosage: 1.842 MICROGRAM PER DAY
     Route: 065
  2. PRIALT [Suspect]
     Active Substance: ZICONOTIDE ACETATE
     Dosage: 2.67 MICROGRAM PER DAY
     Route: 065

REACTIONS (5)
  - Language disorder [Unknown]
  - Memory impairment [Recovered/Resolved]
  - Hallucination [Recovered/Resolved]
  - Memory impairment [Unknown]
  - Dysuria [Unknown]

NARRATIVE: CASE EVENT DATE: 20230114
